FAERS Safety Report 12244606 (Version 1)
Quarter: 2016Q2

REPORT INFORMATION
  Report Type: Spontaneous
  Country: JP (occurrence: JP)
  Receive Date: 20160407
  Receipt Date: 20160407
  Transmission Date: 20160815
  Serious: Yes (Other)
  Sender: FDA-Public Use
  Company Number: JP-ACCORD-039394

PATIENT
  Age: 23 Year
  Sex: Male

DRUGS (4)
  1. TACROLIMUS. [Suspect]
     Active Substance: TACROLIMUS
     Indication: RENAL TRANSPLANT
     Dosage: INDUCTION THERAPY FOLLOWED BY MAINTENANCE DOSAGE. ADDED INTRAVENOUSLY IN CASE OF LOW CONCENTRATION
     Route: 048
  2. BASILIXIMAB [Concomitant]
     Active Substance: BASILIXIMAB
     Indication: RENAL TRANSPLANT
     Dosage: INDUCTION THERAPY FOLLOWED BY MAINTENANCE DOSAGE
  3. RITUXIMAB [Concomitant]
     Active Substance: RITUXIMAB
     Indication: KIDNEY TRANSPLANT REJECTION
  4. MYCOPHENOLIC ACID. [Concomitant]
     Active Substance: MYCOPHENOLIC ACID
     Indication: RENAL TRANSPLANT
     Dosage: INDUCTION THERAPY FOLLOWED BY MAINTENANCE DOSAGE

REACTIONS (1)
  - Angiopathy [Recovering/Resolving]
